FAERS Safety Report 6721400-0 (Version None)
Quarter: 2010Q2

REPORT INFORMATION
  Report Type: 
  Country: None (occurrence: None)
  Receive Date: 20100512
  Receipt Date: 20100507
  Transmission Date: 20101027
  Serious: Yes (Hospitalization)
  Sender: FDA-Public Use
  Company Number: FR-BRISTOL-MYERS SQUIBB COMPANY-14638423

PATIENT
  Age: 62 Year
  Sex: Female

DRUGS (6)
  1. AMIKLIN INJ [Suspect]
     Indication: LUNG DISORDER
     Route: 042
     Dates: start: 20090302, end: 20090317
  2. TAVANIC [Suspect]
     Indication: LUNG DISORDER
     Route: 042
     Dates: start: 20090226, end: 20090303
  3. AUGMENTIN '125' [Suspect]
     Indication: LUNG DISORDER
     Dosage: INTERRUPTED ON 2MAR09
     Dates: start: 20090226
  4. TAZOCILLINE [Suspect]
     Indication: LUNG DISORDER
     Route: 042
     Dates: start: 20090302, end: 20090326
  5. VANCOMYCIN [Suspect]
     Indication: LUNG DISORDER
     Route: 042
     Dates: start: 20090318, end: 20090326
  6. TRIFLUCAN [Suspect]
     Indication: LUNG DISORDER
     Route: 048
     Dates: start: 20090304, end: 20090326

REACTIONS (1)
  - DRUG RASH WITH EOSINOPHILIA AND SYSTEMIC SYMPTOMS [None]
